FAERS Safety Report 9538913 (Version 2)
Quarter: 2013Q3

REPORT INFORMATION
  Report Type: Spontaneous
  Country: MX (occurrence: MX)
  Receive Date: 20130920
  Receipt Date: 20130930
  Transmission Date: 20140515
  Serious: Yes (Disabling)
  Sender: FDA-Public Use
  Company Number: MX-ABBVIE-13P-107-1149260-00

PATIENT
  Age: 57 Year
  Sex: Male
  Weight: 85 kg

DRUGS (1)
  1. CONTROLIP [Suspect]
     Indication: HYPERTRIGLYCERIDAEMIA
     Dates: start: 20130902, end: 20130906

REACTIONS (3)
  - Pain in extremity [Recovered/Resolved]
  - Abasia [Recovered/Resolved]
  - Pelvic pain [Unknown]
